FAERS Safety Report 14313832 (Version 1)
Quarter: 2017Q4

REPORT INFORMATION
  Report Type: Spontaneous
  Country: GB (occurrence: GB)
  Receive Date: 20171221
  Receipt Date: 20171221
  Transmission Date: 20180321
  Serious: Yes (Hospitalization)
  Sender: FDA-Public Use
  Company Number: GB-CIPLA LTD.-2017GB25432

PATIENT

DRUGS (4)
  1. CARBOPLATIN. [Suspect]
     Active Substance: CARBOPLATIN
     Indication: GLIOBLASTOMA MULTIFORME
     Dosage: UNK
     Route: 065
  2. VINCRISTINE [Suspect]
     Active Substance: VINCRISTINE
     Indication: GLIOBLASTOMA MULTIFORME
     Dosage: UNK
     Route: 065
  3. CYCLOPHOSPHAMIDE. [Suspect]
     Active Substance: CYCLOPHOSPHAMIDE
     Indication: GLIOBLASTOMA MULTIFORME
     Dosage: UNK
     Route: 065
  4. ETOPOSIDE. [Suspect]
     Active Substance: ETOPOSIDE
     Indication: GLIOBLASTOMA MULTIFORME
     Dosage: UNK
     Route: 065

REACTIONS (1)
  - Cyst [Recovered/Resolved]
